FAERS Safety Report 19956910 (Version 2)
Quarter: 2025Q4

REPORT INFORMATION
  Report Type: Spontaneous
  Country: US (occurrence: US)
  Receive Date: 20211014
  Receipt Date: 20251210
  Transmission Date: 20260118
  Serious: Yes (Other)
  Sender: COOPERSURGICAL
  Company Number: US-COOPERSURGICAL, INC.-US-2021CPS002970

PATIENT
  Age: 30 Year
  Sex: Female
  Weight: 65.76 kg

DRUGS (2)
  1. PARAGARD T 380A [Suspect]
     Active Substance: COPPER
     Indication: Contraception
     Dosage: UNK
     Route: 015
     Dates: start: 2011, end: 20151016
  2. TOPAMAX [Concomitant]
     Active Substance: TOPIRAMATE
     Dosage: UNK
     Dates: start: 20120103

REACTIONS (25)
  - Surgery [Recovered/Resolved]
  - Cervix operation [Recovered/Resolved]
  - Device breakage [Recovered/Resolved]
  - Foreign body in reproductive tract [Recovered/Resolved]
  - Complication of device removal [Recovered/Resolved]
  - Embedded device [Recovered/Resolved]
  - Uterine perforation [Recovered/Resolved]
  - Uterine scar [Not Recovered/Not Resolved]
  - Migraine [Not Recovered/Not Resolved]
  - Anxiety [Not Recovered/Not Resolved]
  - Depression [Not Recovered/Not Resolved]
  - Post-traumatic stress disorder [Not Recovered/Not Resolved]
  - Device issue [Recovered/Resolved]
  - Muscle spasms [Unknown]
  - Heavy menstrual bleeding [Recovered/Resolved]
  - Abdominal distension [Unknown]
  - Dyspareunia [Recovered/Resolved]
  - Allergy to metals [Not Recovered/Not Resolved]
  - Back pain [Unknown]
  - Intermenstrual bleeding [Unknown]
  - Abnormal uterine bleeding [Unknown]
  - Pelvic pain [Unknown]
  - Vaginal infection [Recovered/Resolved]
  - Discomfort [Unknown]
  - Pain [Unknown]

NARRATIVE: CASE EVENT DATE: 20141201
